FAERS Safety Report 8840496 (Version 2)
Quarter: 2015Q3

REPORT INFORMATION
  Report Type: Report from Study
  Country: US (occurrence: US)
  Receive Date: 20121015
  Receipt Date: 20150813
  Transmission Date: 20151125
  Serious: Yes (Other)
  Sender: FDA-Public Use
  Company Number: US-ROCHE-1139010

PATIENT
  Sex: Male
  Weight: 37.2 kg

DRUGS (7)
  1. DEXEDRINE [Concomitant]
     Active Substance: DEXTROAMPHETAMINE SULFATE
     Indication: ATTENTION DEFICIT/HYPERACTIVITY DISORDER
     Route: 065
  2. WELLBUTRIN [Concomitant]
     Active Substance: BUPROPION HYDROCHLORIDE
     Indication: ATTENTION DEFICIT/HYPERACTIVITY DISORDER
     Route: 065
  3. RITALIN [Concomitant]
     Active Substance: METHYLPHENIDATE HYDROCHLORIDE
     Dosage: 15 MG BEFORE BREAKFAST, 15 MG BEFORE LUNCH, 5 MG AT 3 PM
     Route: 065
  4. DEXEDRINE [Concomitant]
     Active Substance: DEXTROAMPHETAMINE SULFATE
     Indication: HYPERKINESIA
  5. PROTROPIN [Suspect]
     Active Substance: SOMATREM
     Indication: GROWTH HORMONE DEFICIENCY
     Route: 058
     Dates: start: 19961231
  6. PROTROPIN [Suspect]
     Active Substance: SOMATREM
     Route: 058
  7. WELLBUTRIN [Concomitant]
     Active Substance: BUPROPION HYDROCHLORIDE
     Indication: ABNORMAL BEHAVIOUR

REACTIONS (4)
  - Growth retardation [Unknown]
  - Increased appetite [Unknown]
  - Bronchitis [Unknown]
  - Weight decreased [Unknown]
